FAERS Safety Report 5346271-9 (Version None)
Quarter: 2007Q2

REPORT INFORMATION
  Report Type: 
  Country: None (occurrence: None)
  Receive Date: 20070420
  Receipt Date: 20060621
  Transmission Date: 20071010
  Serious: Yes (Congenital Anomaly)
  Sender: FDA-Public Use
  Company Number: 06P-163-0336799-00

PATIENT
  Age: 1 Day
  Sex: Male
  Weight: 3.2341 kg

DRUGS (1)
  1. DEPAKOTE [Suspect]
     Indication: DRUG EXPOSURE DURING PREGNANCY

REACTIONS (2)
  - CLEFT PALATE [None]
  - HYPOSPADIAS [None]
